FAERS Safety Report 7979444-7 (Version None)
Quarter: 2011Q4

REPORT INFORMATION
  Report Type: 
  Country: None (occurrence: None)
  Receive Date: 20111213
  Receipt Date: 20111213
  Transmission Date: 20120403
  Serious: No
  Sender: FDA-Public Use
  Company Number: None

PATIENT
  Age: 45 Year
  Sex: Male
  Weight: 81.9 kg

DRUGS (1)
  1. DOXYCYCLINE [Suspect]
     Dosage: 100 MG BID PO
     Route: 048
     Dates: start: 20111027, end: 20111107

REACTIONS (3)
  - PRURITUS [None]
  - RASH [None]
  - URTICARIA [None]
